FAERS Safety Report 6725271-8 (Version None)
Quarter: 2010Q2

REPORT INFORMATION
  Report Type: 
  Country: None (occurrence: None)
  Receive Date: 20100513
  Receipt Date: 20100513
  Transmission Date: 20101027
  Serious: Yes (Life-Threatening, Hospitalization, Disabling)
  Sender: FDA-Public Use
  Company Number: None

PATIENT
  Age: 77 Year
  Sex: Male
  Weight: 99.7913 kg

DRUGS (2)
  1. ZOCOR [Suspect]
     Indication: TYPE 2 DIABETES MELLITUS
     Dosage: 80 MG 1 A-DAY MOUTH APPROX 2 YRS
     Route: 048
  2. ACTOS [Suspect]
     Indication: TYPE 2 DIABETES MELLITUS
     Dosage: 15 MG 1 A-DAY MOUTH
     Route: 048

REACTIONS (3)
  - ASTHENIA [None]
  - MALAISE [None]
  - RHABDOMYOLYSIS [None]
